FAERS Safety Report 4899515-1 (Version None)
Quarter: 2006Q1

REPORT INFORMATION
  Report Type: 
  Country: None (occurrence: None)
  Receive Date: 20060118
  Receipt Date: 20050503
  Transmission Date: 20060701
  Serious: No
  Sender: FDA-Public Use
  Company Number: 2005000853

PATIENT
  Age: 71 Year
  Sex: Female

DRUGS (2)
  1. TARCEVA [Suspect]
     Indication: LUNG NEOPLASM MALIGNANT
     Dosage: 150 MG (QD), ORAL ; 100 MG (QD), ORAL
     Route: 048
     Dates: start: 20050207, end: 20050210
  2. TARCEVA [Suspect]
     Indication: LUNG NEOPLASM MALIGNANT
     Dosage: 150 MG (QD), ORAL ; 100 MG (QD), ORAL
     Route: 048
     Dates: start: 20050217

REACTIONS (2)
  - RASH [None]
  - VAGINAL INFLAMMATION [None]
